FAERS Safety Report 10465437 (Version 1)
Quarter: 2014Q3

REPORT INFORMATION
  Report Type: Spontaneous
  Country: CH (occurrence: CH)
  Receive Date: 20140919
  Receipt Date: 20140919
  Transmission Date: 20150326
  Serious: Yes (Other)
  Sender: FDA-Public Use
  Company Number: CH-B.I. PHARMACEUTICALS,INC./RIDGEFIELD-2014-BI-43495SI

PATIENT
  Sex: Female

DRUGS (2)
  1. BASAL INSULIN [Concomitant]
     Indication: TYPE 2 DIABETES MELLITUS
     Route: 065
  2. TRADJENTA [Suspect]
     Active Substance: LINAGLIPTIN
     Indication: TYPE 2 DIABETES MELLITUS
     Dosage: 5 MG
     Route: 048

REACTIONS (1)
  - Dementia [Unknown]
